FAERS Safety Report 8933715 (Version 1)
Quarter: 2012Q4

REPORT INFORMATION
  Report Type: 
  Country: CA (occurrence: CA)
  Receive Date: 20121129
  Receipt Date: 20121129
  Transmission Date: 20130627
  Serious: Yes (Other)
  Sender: FDA-Public Use
  Company Number: CA-B.I. PHARMACEUTICALS,INC./RIDGEFIELD-2012-CN-02337CN

PATIENT
  Age: 63 Year
  Sex: Male
  Weight: 113 kg

DRUGS (9)
  1. PRADAX [Suspect]
     Dosage: 300 mg
     Route: 048
  2. ATIVAN [Concomitant]
  3. CIPRALEX [Concomitant]
  4. COVERSYL [Concomitant]
  5. DEXEDRINE [Concomitant]
  6. HCTZ [Concomitant]
  7. VITAMIN D [Concomitant]
  8. WELLBUTRIN XL [Concomitant]
  9. ZOPICLONE [Concomitant]

REACTIONS (1)
  - Blood pressure increased [Unknown]
